FAERS Safety Report 5191392-7 (Version None)
Quarter: 2006Q4

REPORT INFORMATION
  Report Type: 
  Country: None (occurrence: None)
  Receive Date: 20061219
  Receipt Date: 20061204
  Transmission Date: 20070319
  Serious: Yes (Life-Threatening, Other)
  Sender: FDA-Public Use
  Company Number: 430122K05USA

PATIENT
  Age: 55 Year
  Sex: Male

DRUGS (3)
  1. NOVANTRONE [Suspect]
     Indication: MULTIPLE SCLEROSIS
  2. INSULIN [Concomitant]
  3. REBIF [Concomitant]

REACTIONS (1)
  - CARDIAC DISORDER [None]
